FAERS Safety Report 8593244-9 (Version None)
Quarter: 2012Q3

REPORT INFORMATION
  Report Type: 
  Country: None (occurrence: None)
  Receive Date: 20120814
  Receipt Date: 20120731
  Transmission Date: 20120928
  Serious: Yes (Hospitalization)
  Sender: FDA-Public Use
  Company Number: JP-009507513-1208JPN000282

PATIENT

DRUGS (7)
  1. ALLEGRA [Concomitant]
     Indication: PROPHYLAXIS
     Route: 048
     Dates: start: 20120531, end: 20120601
  2. REBETOL [Suspect]
     Indication: HEPATITIS C
     Route: 048
     Dates: start: 20120530
  3. FAMOTIDINE [Concomitant]
     Indication: ABDOMINAL PAIN UPPER
     Route: 048
     Dates: start: 20120602, end: 20120611
  4. MOTILIUM [Concomitant]
     Indication: NAUSEA
     Route: 048
     Dates: start: 20120602, end: 20120606
  5. TELAVIC [Suspect]
     Indication: HEPATITIS C
     Route: 048
     Dates: start: 20120530, end: 20120605
  6. URSO 250 [Concomitant]
     Indication: HEPATITIS C
     Route: 048
  7. PEG-INTRON [Suspect]
     Indication: HEPATITIS C
     Dosage: 1.5MCG/KG/WEEK
     Route: 058
     Dates: start: 20120530

REACTIONS (2)
  - NAUSEA [None]
  - ABDOMINAL PAIN UPPER [None]
